FAERS Safety Report 8129709-3 (Version None)
Quarter: 2012Q1

REPORT INFORMATION
  Report Type: 
  Country: None (occurrence: None)
  Receive Date: 20120210
  Receipt Date: 20120201
  Transmission Date: 20120608
  Serious: Yes (Life-Threatening, Hospitalization, Other)
  Sender: FDA-Public Use
  Company Number: DE-CUBIST-2012S1000119

PATIENT
  Age: 48 Year
  Sex: Male
  Weight: 93.8 kg

DRUGS (5)
  1. CEFUROXIME [Concomitant]
     Indication: PRODUCT USED FOR UNKNOWN INDICATION
     Dosage: DOSE UNIT:U UNKNOWN
     Route: 065
     Dates: start: 20110810, end: 20110811
  2. FLOXACILLIN SODIUM [Concomitant]
     Indication: PRODUCT USED FOR UNKNOWN INDICATION
     Dosage: DOSE UNIT:U UNKNOWN
     Route: 065
  3. CUBICIN [Suspect]
     Route: 042
     Dates: start: 20110801, end: 20110825
  4. CUBICIN [Suspect]
     Indication: ENDOCARDITIS STAPHYLOCOCCAL
     Route: 042
     Dates: start: 20110801, end: 20110825
  5. RIFAMPICIN [Concomitant]
     Indication: PRODUCT USED FOR UNKNOWN INDICATION
     Dosage: DOSE UNIT:U UNKNOWN
     Route: 065

REACTIONS (7)
  - BLOOD CREATININE INCREASED [None]
  - WEIGHT DECREASED [None]
  - DRUG INEFFECTIVE [None]
  - IMPLANT SITE ABSCESS [None]
  - ENDOCARDITIS STAPHYLOCOCCAL [None]
  - SEPSIS [None]
  - BLOOD CREATINE PHOSPHOKINASE INCREASED [None]
